FAERS Safety Report 5454729-7 (Version None)
Quarter: 2007Q3

REPORT INFORMATION
  Report Type: 
  Country: None (occurrence: None)
  Receive Date: 20070917
  Receipt Date: 20070531
  Transmission Date: 20080115
  Serious: Yes (Other)
  Sender: FDA-Public Use
  Company Number: US-ASTRAZENECA-2006UW12115

PATIENT
  Age: 34 Year
  Sex: Male
  Weight: 93.6 kg

DRUGS (4)
  1. SEROQUEL [Suspect]
     Indication: BIPOLAR DISORDER
     Route: 048
     Dates: start: 20030101
  2. ZYPREXA [Suspect]
  3. RISPERDAL [Concomitant]
     Dates: start: 19920101, end: 20030101
  4. THORAZINE [Concomitant]
     Dates: start: 19990101

REACTIONS (2)
  - DIABETES MELLITUS [None]
  - TARDIVE DYSKINESIA [None]
